FAERS Safety Report 14277223 (Version 1)
Quarter: 2017Q4

REPORT INFORMATION
  Report Type: Spontaneous
  Country: DE (occurrence: DE)
  Receive Date: 20171211
  Receipt Date: 20171211
  Transmission Date: 20180321
  Serious: Yes (Disabling)
  Sender: FDA-Public Use
  Company Number: DE-OTSUKA-J20128371

PATIENT
  Sex: Female
  Weight: 88 kg

DRUGS (5)
  1. ABILIFY [Suspect]
     Active Substance: ARIPIPRAZOLE
     Indication: COMPULSIONS
  2. ENALAPRIL [Concomitant]
     Active Substance: ENALAPRIL
     Indication: PRODUCT USED FOR UNKNOWN INDICATION
     Dosage: UNK
     Route: 065
     Dates: start: 2012
  3. ABILIFY [Suspect]
     Active Substance: ARIPIPRAZOLE
     Indication: DELUSION
  4. ENALAPRIL [Concomitant]
     Active Substance: ENALAPRIL
     Indication: HYPERTENSION
  5. ABILIFY [Suspect]
     Active Substance: ARIPIPRAZOLE
     Indication: IMPULSE-CONTROL DISORDER
     Dosage: EVENING SINCE SPRING 2011
     Route: 065
     Dates: start: 2011

REACTIONS (5)
  - Hypertension [Unknown]
  - Off label use [Unknown]
  - Binge eating [Unknown]
  - Weight increased [Not Recovered/Not Resolved]
  - Fatigue [Unknown]
